FAERS Safety Report 4898639-2 (Version None)
Quarter: 2006Q1

REPORT INFORMATION
  Report Type: 
  Country: None (occurrence: None)
  Receive Date: 20060127
  Receipt Date: 20060117
  Transmission Date: 20060701
  Serious: Yes (Other)
  Sender: FDA-Public Use
  Company Number: 2005068169

PATIENT
  Age: 47 Year
  Sex: Female

DRUGS (3)
  1. BEXTRA [Suspect]
     Indication: FIBROMYALGIA
     Dosage: 20 MG (20 MG, 1 IN 1 D), ORAL
     Route: 048
     Dates: start: 20020801, end: 20030201
  2. VIOXX [Suspect]
     Indication: ILL-DEFINED DISORDER
  3. TENORMIN [Concomitant]

REACTIONS (4)
  - CEREBROVASCULAR ACCIDENT [None]
  - EMOTIONAL DISTRESS [None]
  - INJURY [None]
  - PAIN [None]
